FAERS Safety Report 9562315 (Version 1)
Quarter: 2013Q3

REPORT INFORMATION
  Report Type: Report from Study
  Country: DE (occurrence: DE)
  Receive Date: 20130927
  Receipt Date: 20130927
  Transmission Date: 20140515
  Serious: Yes (Hospitalization, Other)
  Sender: FDA-Public Use
  Company Number: DE-BIOGENIDEC-2013BI091117

PATIENT
  Age: 52 Year
  Sex: Male

DRUGS (4)
  1. TYSABRI [Suspect]
     Indication: RELAPSING-REMITTING MULTIPLE SCLEROSIS
     Route: 042
     Dates: start: 20080414
  2. SOTALOL [Concomitant]
     Indication: CORONARY ARTERY DISEASE
     Route: 048
     Dates: start: 19960101
  3. ASS [Concomitant]
     Indication: CORONARY ARTERY DISEASE
     Route: 048
     Dates: start: 19960101
  4. SIMVASTATIN [Concomitant]
     Indication: LIPID METABOLISM DISORDER
     Route: 048
     Dates: start: 20040101

REACTIONS (1)
  - Erysipelas [Recovered/Resolved with Sequelae]
